FAERS Safety Report 10711535 (Version 1)
Quarter: 2015Q1

REPORT INFORMATION
  Report Type: Spontaneous
  Country: US (occurrence: US)
  Receive Date: 20150114
  Receipt Date: 20150114
  Transmission Date: 20150721
  Serious: No
  Sender: FDA-Public Use
  Company Number: US-009507513-1501USA003579

PATIENT
  Age: 67 Year
  Sex: Female

DRUGS (1)
  1. CORRECTOL NOS [Suspect]
     Active Substance: BISACODYL OR DOCUSATE SODIUM
     Indication: PRODUCT USED FOR UNKNOWN INDICATION
     Dosage: 3 DF, UNKNOWN
     Route: 048

REACTIONS (4)
  - Rectal haemorrhage [Unknown]
  - Faecal incontinence [Unknown]
  - Abdominal pain [Unknown]
  - Flank pain [Unknown]
